FAERS Safety Report 4704483-9 (Version None)
Quarter: 2005Q2

REPORT INFORMATION
  Report Type: 
  Country: None (occurrence: None)
  Receive Date: 20050628
  Receipt Date: 20050609
  Transmission Date: 20051028
  Serious: Yes (Other)
  Sender: FDA-Public Use
  Company Number: DE_050616142

PATIENT
  Sex: Male

DRUGS (2)
  1. CIALIS [Suspect]
     Indication: PROSTATE CANCER
     Dosage: 20 MG
     Dates: start: 20040601, end: 20041001
  2. THYROXIN            (LEVOTHYROXINE SODIUM) [Concomitant]

REACTIONS (1)
  - EPILEPSY [None]
